FAERS Safety Report 24397462 (Version 1)
Quarter: 2024Q4

REPORT INFORMATION
  Report Type: Spontaneous
  Country: US (occurrence: None)
  Receive Date: 20241003
  Receipt Date: 20241003
  Transmission Date: 20250115
  Serious: No
  Sender: Public
  Company Number: None

PATIENT
  Age: 75 Year
  Sex: Male

DRUGS (1)
  1. EMPAGLIFLOZIN [Suspect]
     Active Substance: EMPAGLIFLOZIN

REACTIONS (3)
  - Nephrolithiasis [None]
  - Septic shock [None]
  - Urinary tract infection [None]

NARRATIVE: CASE EVENT DATE: 20240412
